FAERS Safety Report 10249421 (Version 3)
Quarter: 2014Q2

REPORT INFORMATION
  Report Type: Report from Study
  Country: JP (occurrence: JP)
  Receive Date: 20140620
  Receipt Date: 20140626
  Transmission Date: 20141212
  Serious: Yes (Other)
  Sender: FDA-Public Use
  Company Number: JP-ROCHE-1337172

PATIENT
  Age: 57 Year
  Sex: Male

DRUGS (1)
  1. BEVACIZUMAB [Suspect]
     Indication: RETINAL VEIN OCCLUSION
     Dosage: DOSAGE IS UNCERTAIN.
     Route: 031
     Dates: start: 201202, end: 201202

REACTIONS (3)
  - Meibomianitis [Unknown]
  - Corneal disorder [Unknown]
  - Off label use [Unknown]
